FAERS Safety Report 5386520-4 (Version None)
Quarter: 2007Q3

REPORT INFORMATION
  Report Type: 
  Country: None (occurrence: None)
  Receive Date: 20070713
  Receipt Date: 20070703
  Transmission Date: 20080115
  Serious: Yes (Hospitalization, Other)
  Sender: FDA-Public Use
  Company Number: PL-AMGEN-UK232618

PATIENT
  Sex: Female

DRUGS (1)
  1. PANITUMUMAB [Suspect]
     Indication: COLORECTAL CANCER
     Route: 042
     Dates: start: 20070619, end: 20070619

REACTIONS (3)
  - FEMORAL ARTERY OCCLUSION [None]
  - ILIAC ARTERY EMBOLISM [None]
  - PERIPHERAL ARTERIAL OCCLUSIVE DISEASE [None]
